FAERS Safety Report 5400261-6 (Version None)
Quarter: 2007Q3

REPORT INFORMATION
  Report Type: 
  Country: None (occurrence: None)
  Receive Date: 20070730
  Receipt Date: 20070717
  Transmission Date: 20080115
  Serious: Yes (Other)
  Sender: FDA-Public Use
  Company Number: US-ROCHE-496610

PATIENT
  Age: 30 Year
  Sex: Female

DRUGS (3)
  1. PEGASYS [Suspect]
     Route: 065
     Dates: end: 20070503
  2. RIBAVIRIN [Suspect]
     Route: 065
     Dates: end: 20070503
  3. PAXIL [Concomitant]

REACTIONS (1)
  - RETINAL DETACHMENT [None]
